FAERS Safety Report 13106030 (Version 1)
Quarter: 2017Q1

REPORT INFORMATION
  Report Type: Spontaneous
  Country: ES (occurrence: ES)
  Receive Date: 20170111
  Receipt Date: 20170111
  Transmission Date: 20170428
  Serious: Yes (Death, Other)
  Sender: FDA-Public Use
  Company Number: ES-JNJFOC-20170106919

PATIENT
  Age: 85 Year
  Sex: Male

DRUGS (1)
  1. RIVAROXABAN [Suspect]
     Active Substance: RIVAROXABAN
     Indication: ATRIAL FIBRILLATION
     Route: 048

REACTIONS (13)
  - Multiple fractures [Unknown]
  - Condition aggravated [Unknown]
  - Pleural effusion [Unknown]
  - Rib fracture [Unknown]
  - Post procedural haemorrhage [Unknown]
  - Infusion site extravasation [Fatal]
  - Chest X-ray abnormal [Unknown]
  - Contusion [Unknown]
  - Chest injury [Unknown]
  - Dizziness [Unknown]
  - Mediastinal mass [Unknown]
  - Hypoventilation [Unknown]
  - Haemothorax [Unknown]
